FAERS Safety Report 7556544-7 (Version None)
Quarter: 2011Q2

REPORT INFORMATION
  Report Type: 
  Country: None (occurrence: None)
  Receive Date: 20110610
  Receipt Date: 20110530
  Transmission Date: 20111010
  Serious: Yes (Hospitalization, Other)
  Sender: FDA-Public Use
  Company Number: WAES 1011USA00380

PATIENT
  Age: 64 Year
  Sex: Female

DRUGS (7)
  1. CAP VORINOSTAT [Suspect]
     Indication: MULTIPLE MYELOMA
     Dosage: 400 MG/DAILY 300 MG/DAILY
     Route: 048
     Dates: start: 20100803, end: 20101021
  2. CAP VORINOSTAT [Suspect]
     Indication: MULTIPLE MYELOMA
     Dosage: 400 MG/DAILY 300 MG/DAILY
     Route: 048
     Dates: start: 20101108, end: 20101122
  3. LOMOTIL [Concomitant]
  4. NITRAZEPAM [Concomitant]
  5. TEMAZEPAM [Concomitant]
  6. BORTEZOMIB [Suspect]
     Indication: MULTIPLE MYELOMA
     Dosage: 1.8 MG/M[S]/DAILY
     Route: 042
     Dates: start: 20100803, end: 20101122
  7. MAGMIN [Concomitant]

REACTIONS (10)
  - THROMBOCYTOPENIA [None]
  - ANAEMIA [None]
  - ATELECTASIS [None]
  - NAUSEA [None]
  - NEOPLASM MALIGNANT [None]
  - NEUROPATHY PERIPHERAL [None]
  - MULTIPLE MYELOMA [None]
  - PNEUMOCYSTIS JIROVECI PNEUMONIA [None]
  - ACCIDENTAL OVERDOSE [None]
  - WEIGHT DECREASED [None]
